FAERS Safety Report 5515472-9 (Version None)
Quarter: 2007Q4

REPORT INFORMATION
  Report Type: 
  Country: None (occurrence: None)
  Receive Date: 20071113
  Receipt Date: 20070227
  Transmission Date: 20080405
  Serious: No
  Sender: FDA-Public Use
  Company Number: A0641137A

PATIENT
  Age: 74 Year
  Sex: Male

DRUGS (6)
  1. COREG [Suspect]
     Dosage: 3.125MG TWICE PER DAY
     Route: 048
     Dates: start: 20060201
  2. PAXIL [Suspect]
     Indication: DEPRESSION
     Route: 048
  3. COZAAR [Concomitant]
  4. NORVASC [Concomitant]
  5. DIHYDRALAZINE [Concomitant]
  6. ZETIA [Concomitant]

REACTIONS (2)
  - FATIGUE [None]
  - NAUSEA [None]
